FAERS Safety Report 24556100 (Version 2)
Quarter: 2024Q4

REPORT INFORMATION
  Report Type: Spontaneous
  Country: US (occurrence: US)
  Receive Date: 20241028
  Receipt Date: 20241104
  Transmission Date: 20250115
  Serious: No
  Sender: TRAVERE THERAPEUTICS
  Company Number: US-TRAVERE-2024TVT01002

PATIENT
  Age: 41 Year
  Sex: Female

DRUGS (2)
  1. FILSPARI [Suspect]
     Active Substance: SPARSENTAN
     Indication: IgA nephropathy
     Dosage: 200 MG 2 TABLETS DAILY
     Route: 048
     Dates: start: 20241011
  2. FILSPARI [Suspect]
     Active Substance: SPARSENTAN
     Dosage: 200 MG 1 TABLET DAILY
     Route: 048

REACTIONS (3)
  - Dark circles under eyes [Recovering/Resolving]
  - Periorbital swelling [Unknown]
  - Eye swelling [Unknown]
